FAERS Safety Report 9739405 (Version 2)
Quarter: 2013Q4

REPORT INFORMATION
  Report Type: Spontaneous
  Country: US (occurrence: US)
  Receive Date: 20131209
  Receipt Date: 20131209
  Transmission Date: 20140711
  Serious: No
  Sender: FDA-Public Use
  Company Number: US-BRISTOL-MYERS SQUIBB COMPANY-17378647

PATIENT
  Age: 57 Year
  Sex: Female

DRUGS (1)
  1. IXEMPRA [Suspect]
     Indication: BREAST CANCER METASTATIC
     Dosage: INTERRUPTED ON 27JUL2012;?RESTARTED ON 01NOV2012 WITH 32MG/M2
     Dates: start: 20120216

REACTIONS (1)
  - Neuropathy peripheral [Unknown]
